FAERS Safety Report 5701663-0 (Version None)
Quarter: 2008Q2

REPORT INFORMATION
  Report Type: 
  Country: None (occurrence: None)
  Receive Date: 20080409
  Receipt Date: 20080409
  Transmission Date: 20081010
  Serious: Yes (Death)
  Sender: FDA-Public Use
  Company Number: None

PATIENT
  Age: 24 Year
  Sex: Female
  Weight: 33 kg

DRUGS (4)
  1. KALETRA [Suspect]
     Indication: HIV INFECTION
     Dosage: 1 TABLET TWICE A DAY ORALLY
     Route: 048
     Dates: start: 20071116, end: 20080219
  2. TRUVADA [Suspect]
     Indication: HIV INFECTION
     Dosage: 1 TABLET ONCE A DAY ORALLY
     Route: 048
     Dates: start: 20071116, end: 20080219
  3. COTRIMOXAZOLE [Concomitant]
  4. FEFOL [Concomitant]

REACTIONS (10)
  - BLOOD ALBUMIN DECREASED [None]
  - BLOOD ALKALINE PHOSPHATASE INCREASED [None]
  - BODY MASS INDEX DECREASED [None]
  - CARBON DIOXIDE DECREASED [None]
  - DIARRHOEA [None]
  - GENERAL PHYSICAL HEALTH DETERIORATION [None]
  - HAEMOGLOBIN DECREASED [None]
  - PULMONARY TUBERCULOSIS [None]
  - VOMITING [None]
  - WEIGHT DECREASED [None]
